FAERS Safety Report 8911682 (Version 2)
Quarter: 2012Q4

REPORT INFORMATION
  Report Type: Report from Study
  Country: DE (occurrence: DE)
  Receive Date: 20121116
  Receipt Date: 20121211
  Transmission Date: 20130627
  Serious: Yes (Hospitalization)
  Sender: FDA-Public Use
  Company Number: DE-BAYER-2012-119239

PATIENT
  Sex: Male
  Weight: 71.4 kg

DRUGS (5)
  1. REGORAFENIB [Suspect]
     Indication: COLORECTAL CANCER
     Dosage: 160 mg, QD
     Route: 048
     Dates: start: 20120821, end: 20120910
  2. REGORAFENIB [Suspect]
     Indication: COLORECTAL CANCER
     Dosage: 160 mg, QD
     Route: 048
     Dates: start: 20120917, end: 20121001
  3. REGORAFENIB [Suspect]
     Indication: COLORECTAL CANCER
     Dosage: 120 mg, QD
     Route: 048
     Dates: start: 20121018, end: 20121028
  4. REGORAFENIB [Suspect]
     Indication: COLORECTAL CANCER
     Dosage: 80 mg, QD
     Route: 048
     Dates: start: 20121028, end: 20121107
  5. MARCUMAR [Concomitant]
     Indication: PULMONARY EMBOLISM
     Dosage: INR dose adopted
     Route: 048
     Dates: start: 201205

REACTIONS (1)
  - Dehydration [Recovered/Resolved]
